FAERS Safety Report 4409965-5 (Version None)
Quarter: 2004Q3

REPORT INFORMATION
  Report Type: 
  Country: None (occurrence: None)
  Receive Date: 20040726
  Receipt Date: 20040713
  Transmission Date: 20050211
  Serious: Yes (Death)
  Sender: FDA-Public Use
  Company Number: BE-JNJFOC-20040602374

PATIENT
  Age: 79 Year
  Sex: Male

DRUGS (12)
  1. PROPULSID [Suspect]
     Indication: DIABETIC GASTROPARESIS
     Dosage: 5 MG, 4 IN 1 DAY, ORAL
     Route: 048
     Dates: start: 20040220, end: 20040306
  2. IMOVANE (ZOPICLONE) [Concomitant]
  3. CORDARONE [Concomitant]
  4. SIPRALEXA (CITALOPRAM) [Concomitant]
  5. DUOVENT (DUOVENT) [Concomitant]
  6. AUGMENTIN [Concomitant]
  7. ENOXAPARIN SODIUM [Concomitant]
  8. COLCHICINE (COLCHICINE) [Concomitant]
  9. SILOMAT (CLOBUTINOL HYDROCHLORIDE) [Concomitant]
  10. ZANTAC [Concomitant]
  11. LITICAN (ALIZAPRIDE) [Concomitant]
  12. DOLZAM (TRAMADOL HYDROCHLORIDE) [Concomitant]

REACTIONS (4)
  - ARRHYTHMIA [None]
  - INFARCTION [None]
  - PNEUMONIA [None]
  - RESPIRATORY TRACT INFECTION [None]
